FAERS Safety Report 18504558 (Version 4)
Quarter: 2020Q4

REPORT INFORMATION
  Report Type: Spontaneous
  Country: CN (occurrence: CN)
  Receive Date: 20201114
  Receipt Date: 20201202
  Transmission Date: 20210114
  Serious: Yes (Death, Other)
  Sender: FDA-Public Use
  Company Number: NVSC2020CN304856

PATIENT
  Age: 40 Year
  Sex: Female

DRUGS (2)
  1. VOLTAREN [Suspect]
     Active Substance: DICLOFENAC SODIUM
     Indication: PAIN
     Dosage: 1 DF, BID
     Route: 048
     Dates: start: 2020
  2. FLURBIPROFEN. [Concomitant]
     Active Substance: FLURBIPROFEN
     Indication: PRODUCT USED FOR UNKNOWN INDICATION
     Dosage: UNK
     Route: 065
     Dates: start: 202009

REACTIONS (7)
  - Oral mucosal erythema [Unknown]
  - Oral pruritus [Unknown]
  - Multiple organ dysfunction syndrome [Fatal]
  - Oral mucosal eruption [Unknown]
  - Lip pruritus [Unknown]
  - Lip erythema [Unknown]
  - Cheilitis [Unknown]

NARRATIVE: CASE EVENT DATE: 20200930
